FAERS Safety Report 17212891 (Version 1)
Quarter: 2019Q4

REPORT INFORMATION
  Report Type: Spontaneous
  Country: SE (occurrence: SE)
  Receive Date: 20191230
  Receipt Date: 20191230
  Transmission Date: 20200122
  Serious: Yes (Hospitalization)
  Sender: FDA-Public Use
  Company Number: SE-TEVA-2019-SE-1158610

PATIENT
  Sex: Male

DRUGS (2)
  1. PROPAVAN [Suspect]
     Active Substance: PROPIOMAZINE
     Dosage: 2.25 GM
     Route: 048
     Dates: start: 20180414, end: 20180414
  2. QUETIAPINE. [Suspect]
     Active Substance: QUETIAPINE
     Dosage: 1.7 GM
     Route: 048
     Dates: start: 20180414, end: 20180414

REACTIONS (5)
  - Intentional self-injury [Unknown]
  - Intentional overdose [Unknown]
  - Headache [Unknown]
  - Lethargy [Unknown]
  - Miosis [Unknown]

NARRATIVE: CASE EVENT DATE: 20180414
